FAERS Safety Report 8001190-4 (Version None)
Quarter: 2011Q4

REPORT INFORMATION
  Report Type: 
  Country: None (occurrence: None)
  Receive Date: 20111222
  Receipt Date: 20111212
  Transmission Date: 20120403
  Serious: Yes (Hospitalization, Other)
  Sender: FDA-Public Use
  Company Number: US-CELGENEUS-163-21880-11081910

PATIENT
  Sex: Male
  Weight: 118.04 kg

DRUGS (4)
  1. CATAPRES [Concomitant]
     Indication: HYPERTENSION
     Dosage: .1 MILLIGRAM
     Route: 048
  2. REVLIMID [Suspect]
     Dosage: 10 MILLIGRAM
     Route: 048
     Dates: start: 20110715, end: 20110812
  3. REVLIMID [Suspect]
     Dosage: 10 MILLIGRAM
     Route: 048
  4. REVLIMID [Suspect]
     Indication: MULTIPLE MYELOMA
     Dosage: 10 MILLIGRAM
     Route: 048
     Dates: start: 20080808, end: 20090420

REACTIONS (3)
  - CARDIAC FAILURE CONGESTIVE [None]
  - RENAL AMYLOIDOSIS [None]
  - OEDEMA [None]
